FAERS Safety Report 9705281 (Version 1)
Quarter: 2013Q4

REPORT INFORMATION
  Report Type: Spontaneous
  Country: US (occurrence: US)
  Receive Date: 20131122
  Receipt Date: 20131122
  Transmission Date: 20140711
  Serious: No
  Sender: FDA-Public Use
  Company Number: US-BAYER-2013-141747

PATIENT
  Age: 59 Year
  Sex: Female
  Weight: 63 kg

DRUGS (4)
  1. CLIMARA [Suspect]
     Indication: MENOPAUSAL SYMPTOMS
     Dosage: 0.075MG;DAY
     Route: 062
     Dates: start: 20130926, end: 20131114
  2. VIVELLE-DOT [Suspect]
     Indication: MENOPAUSAL SYMPTOMS
     Dosage: 0.075MG/DAY
     Route: 062
     Dates: start: 20130813, end: 20130925
  3. BENICAR [Concomitant]
     Indication: HYPERTENSION
     Dosage: 20 MG, QD
     Route: 048
     Dates: start: 2011
  4. PROGESTERONE [Concomitant]
     Indication: UTERINE DISORDER
     Dosage: 100 MG, UNK
     Route: 048
     Dates: start: 20130909

REACTIONS (3)
  - Application site irritation [Not Recovered/Not Resolved]
  - Pruritus [Not Recovered/Not Resolved]
  - Erythema [Not Recovered/Not Resolved]
